FAERS Safety Report 9156903 (Version 1)
Quarter: 2013Q1

REPORT INFORMATION
  Report Type: Spontaneous
  Country: AT (occurrence: None)
  Receive Date: 20130206
  Receipt Date: 20130206
  Transmission Date: 20140127
  Serious: Yes (Life-Threatening)
  Sender: FDA-Public Use
  Company Number: FK201300305

PATIENT
  Age: 51 Year
  Sex: Male

DRUGS (1)
  1. VOLUVEN [Suspect]
     Dosage: INTRAVENOUS (NOT OTHERWISE SPECIFIED)
     Route: 042
     Dates: start: 20110314, end: 20110314

REACTIONS (3)
  - Cardiac arrest [None]
  - Extravasation [None]
  - Obstructive airways disorder [None]
